FAERS Safety Report 4966016-1 (Version None)
Quarter: 2006Q2

REPORT INFORMATION
  Report Type: 
  Country: None (occurrence: None)
  Receive Date: 20060407
  Receipt Date: 20060310
  Transmission Date: 20061013
  Serious: Yes (Hospitalization)
  Sender: FDA-Public Use
  Company Number: FR-GLAXOSMITHKLINE-B0415653A

PATIENT
  Age: 31 Year
  Sex: Female
  Weight: 50 kg

DRUGS (7)
  1. COMBIVIR [Suspect]
     Indication: HIV INFECTION
     Dosage: 2TAB PER DAY
     Route: 048
     Dates: start: 20030612
  2. VIRAMUNE [Suspect]
     Indication: HIV INFECTION
     Route: 048
     Dates: start: 20060103, end: 20060131
  3. KALETRA [Suspect]
     Indication: HIV INFECTION
     Dosage: 3TAB TWICE PER DAY
     Route: 048
     Dates: start: 20030612, end: 20060102
  4. AUGMENTIN '125' [Concomitant]
     Indication: COUGH
     Route: 065
     Dates: end: 20060131
  5. CLARITHROMYCIN [Concomitant]
     Indication: COUGH
     Route: 065
     Dates: end: 20060131
  6. CETIRIZINE HCL [Concomitant]
     Indication: COUGH
     Route: 065
     Dates: end: 20060131
  7. PARACETAMOL [Concomitant]
     Indication: COUGH
     Route: 065
     Dates: end: 20060131

REACTIONS (15)
  - ABDOMINAL PAIN UPPER [None]
  - ALANINE AMINOTRANSFERASE INCREASED [None]
  - ARTHRALGIA [None]
  - BLOOD ALKALINE PHOSPHATASE INCREASED [None]
  - BLOOD BILIRUBIN INCREASED [None]
  - CHOLESTASIS [None]
  - CYTOLYTIC HEPATITIS [None]
  - GAMMA-GLUTAMYLTRANSFERASE INCREASED [None]
  - GENERAL PHYSICAL HEALTH DETERIORATION [None]
  - HEPATOMEGALY [None]
  - JAUNDICE [None]
  - MYALGIA [None]
  - PERITONEAL EFFUSION [None]
  - PRURITUS [None]
  - RIGHT VENTRICULAR FAILURE [None]
